FAERS Safety Report 5454559-6 (Version None)
Quarter: 2007Q3

REPORT INFORMATION
  Report Type: 
  Country: None (occurrence: None)
  Receive Date: 20070917
  Receipt Date: 20060914
  Transmission Date: 20080115
  Serious: Yes (Disabling)
  Sender: FDA-Public Use
  Company Number: US-ASTRAZENECA-2006UW18010

PATIENT
  Age: 4202 Day
  Weight: 51.8 kg

DRUGS (7)
  1. SEROQUEL [Suspect]
     Indication: AGITATION
     Route: 048
     Dates: start: 20030327, end: 20040416
  2. SEROQUEL [Suspect]
     Indication: AGGRESSION
     Route: 048
     Dates: start: 20030327, end: 20040416
  3. DEPAKOTE [Concomitant]
     Indication: AFFECTIVE DISORDER
  4. CONCERTA [Concomitant]
     Indication: ATTENTION DEFICIT/HYPERACTIVITY DISORDER
  5. WELLBUTRIN SR [Concomitant]
     Indication: DEPRESSION
  6. UNSPECIFIED [Concomitant]
     Indication: SLEEP DISORDER
  7. UNSPECIFIED [Concomitant]
     Indication: ANXIETY

REACTIONS (1)
  - TYPE 1 DIABETES MELLITUS [None]
